FAERS Safety Report 25330433 (Version 2)
Quarter: 2025Q2

REPORT INFORMATION
  Report Type: Report from Study
  Country: US (occurrence: US)
  Receive Date: 20250519
  Receipt Date: 20250609
  Transmission Date: 20250717
  Serious: Yes (Hospitalization)
  Sender: SUNOVION
  Company Number: US-SUMITOMO PHARMA SWITZERLAND GMBH-2025SPA003804

PATIENT

DRUGS (12)
  1. ORGOVYX [Suspect]
     Active Substance: RELUGOLIX
     Indication: Prostate cancer
     Dosage: 240 MG, SINGLE
     Route: 048
     Dates: start: 20250310, end: 20250310
  2. ORGOVYX [Suspect]
     Active Substance: RELUGOLIX
     Dosage: 120 MG, QD
     Route: 048
     Dates: start: 20250311
  3. LOSARTAN POTASSIUM [Concomitant]
     Active Substance: LOSARTAN POTASSIUM
     Route: 048
     Dates: end: 20250530
  4. AMLODIPINE BESYLATE [Concomitant]
     Active Substance: AMLODIPINE BESYLATE
  5. ATORVASTATIN CALCIUM [Concomitant]
     Active Substance: ATORVASTATIN CALCIUM
     Route: 048
  6. HYDROCHLOROTHIAZIDE [Concomitant]
     Active Substance: HYDROCHLOROTHIAZIDE
     Route: 048
  7. LISINOPRIL [Concomitant]
     Active Substance: LISINOPRIL
     Route: 048
  8. PREDNISONE [Concomitant]
     Active Substance: PREDNISONE
     Route: 048
  9. ABIRATERONE [Concomitant]
     Active Substance: ABIRATERONE
     Route: 065
  10. AMIODARONE [Concomitant]
     Active Substance: AMIODARONE
     Route: 065
  11. ELIQUIS [Concomitant]
     Active Substance: APIXABAN
     Route: 065
  12. METOPROLOL [Concomitant]
     Active Substance: METOPROLOL
     Route: 065

REACTIONS (5)
  - Heart rate irregular [Unknown]
  - Blood pressure decreased [Unknown]
  - Dizziness [Unknown]
  - Underdose [Unknown]
  - Product dose omission issue [Unknown]
